FAERS Safety Report 5825885-3 (Version None)
Quarter: 2008Q3

REPORT INFORMATION
  Report Type: 
  Country: None (occurrence: None)
  Receive Date: 20080723
  Receipt Date: 20080712
  Transmission Date: 20090109
  Serious: Yes (Other)
  Sender: FDA-Public Use
  Company Number: 2008018632

PATIENT
  Sex: Male

DRUGS (1)
  1. BENADRYL ITCH STOPPING SPRAY (DIPHENHYDRAMINE, ZINC ACETATE) [Suspect]
     Indication: RASH PRURITIC
     Dosage: TOPICAL
     Route: 061

REACTIONS (2)
  - APPLICATION SITE BURN [None]
  - VICTIM OF CHILD ABUSE [None]
